FAERS Safety Report 11379252 (Version 1)
Quarter: 2015Q3

REPORT INFORMATION
  Report Type: Spontaneous
  Country: US (occurrence: US)
  Receive Date: 20150811
  Receipt Date: 20150811
  Transmission Date: 20151125
  Serious: No
  Sender: FDA-Public Use
  Company Number: US-ELI_LILLY_AND_COMPANY-US200905003818

PATIENT
  Sex: Male

DRUGS (3)
  1. CIALIS [Suspect]
     Active Substance: TADALAFIL
     Dosage: 20 MG, AS NEEDED
     Route: 065
     Dates: start: 200903, end: 200905
  2. CIALIS [Suspect]
     Active Substance: TADALAFIL
     Dosage: 30 MG, AS NEEDED
     Route: 065
     Dates: start: 200905
  3. METFORMIN [Concomitant]
     Active Substance: METFORMIN HYDROCHLORIDE
     Dosage: 1000 MG, UNKNOWN
     Route: 065

REACTIONS (3)
  - Therapeutic response decreased [Recovered/Resolved]
  - Erectile dysfunction [Unknown]
  - Intentional overdose [Unknown]

NARRATIVE: CASE EVENT DATE: 200905
